FAERS Safety Report 22614330 (Version 2)
Quarter: 2025Q4

REPORT INFORMATION
  Report Type: Report from Study
  Country: US (occurrence: US)
  Receive Date: 20230619
  Receipt Date: 20251224
  Transmission Date: 20260117
  Serious: Yes (Other)
  Sender: TAKEDA
  Company Number: US-TAKEDA-2022TUS066298

PATIENT
  Age: 62 Year
  Sex: Female
  Weight: 79 kg

DRUGS (4)
  1. VEDOLIZUMAB [Suspect]
     Active Substance: VEDOLIZUMAB
     Indication: Crohn^s disease
     Dosage: 300 MILLIGRAM
  2. PREDNISONE [Suspect]
     Active Substance: PREDNISONE
     Indication: Rectal haemorrhage
     Dosage: UNK
  3. FUROSEMIDE [Concomitant]
     Active Substance: FUROSEMIDE
     Indication: Oedema peripheral
     Dosage: UNK
  4. POTASSIUM [Concomitant]
     Active Substance: POTASSIUM
     Dosage: UNK

REACTIONS (18)
  - Colitis [Unknown]
  - Choking [Unknown]
  - Meniscus injury [Unknown]
  - Hypoacusis [Unknown]
  - Confusional state [Unknown]
  - Panic attack [Unknown]
  - Illness [Unknown]
  - Weight decreased [Unknown]
  - Gastrointestinal disorder [Unknown]
  - Large intestine polyp [Unknown]
  - Weight increased [Unknown]
  - Hepatic steatosis [Unknown]
  - Abdominal distension [Unknown]
  - Hypersensitivity [Unknown]
  - Nasopharyngitis [Unknown]
  - Arthralgia [Unknown]
  - Fatigue [Unknown]
  - Cough [Unknown]
